FAERS Safety Report 15210508 (Version 2)
Quarter: 2018Q3

REPORT INFORMATION
  Report Type: Report from Study
  Country: None (occurrence: CA)
  Receive Date: 20180727
  Receipt Date: 20180830
  Transmission Date: 20181010
  Serious: Yes (Hospitalization)
  Sender: FDA-Public Use
  Company Number: CA-ABBVIE-18K-028-2433077-00

PATIENT
  Sex: Male

DRUGS (1)
  1. HUMIRA [Suspect]
     Active Substance: ADALIMUMAB
     Indication: CROHN^S DISEASE
     Route: 058
     Dates: start: 20160525

REACTIONS (4)
  - Intestinal obstruction [Not Recovered/Not Resolved]
  - Food intolerance [Unknown]
  - Nephrolithiasis [Not Recovered/Not Resolved]
  - Intestinal stenosis [Not Recovered/Not Resolved]
